FAERS Safety Report 25191800 (Version 4)
Quarter: 2025Q4

REPORT INFORMATION
  Report Type: Spontaneous
  Country: EU (occurrence: EU)
  Receive Date: 20250414
  Receipt Date: 20251208
  Transmission Date: 20260118
  Serious: Yes (Other)
  Sender: MYLAN
  Company Number: EU-002147023-NVSC2025CZ048348

PATIENT
  Sex: Female

DRUGS (152)
  1. IMATINIB [Suspect]
     Active Substance: IMATINIB
     Indication: Chronic myeloid leukaemia
     Dosage: UNK (REDUCED)
     Route: 065
  2. IMATINIB [Suspect]
     Active Substance: IMATINIB
     Dosage: UNK (REDUCED)
  3. IMATINIB [Suspect]
     Active Substance: IMATINIB
     Dosage: UNK (REDUCED)
  4. IMATINIB [Suspect]
     Active Substance: IMATINIB
     Dosage: UNK (REDUCED)
     Route: 065
  5. IMATINIB [Suspect]
     Active Substance: IMATINIB
     Dosage: 400 MG, QD
     Route: 065
     Dates: start: 200604
  6. IMATINIB [Suspect]
     Active Substance: IMATINIB
     Dosage: 400 MG, QD
     Dates: start: 200604
  7. IMATINIB [Suspect]
     Active Substance: IMATINIB
     Dosage: 400 MG, QD
     Dates: start: 200604
  8. IMATINIB [Suspect]
     Active Substance: IMATINIB
     Dosage: 400 MG, QD
     Route: 065
     Dates: start: 200604
  9. IMATINIB [Suspect]
     Active Substance: IMATINIB
     Dosage: 400 MILLIGRAM, QD
     Dates: start: 2006, end: 200609
  10. IMATINIB [Suspect]
     Active Substance: IMATINIB
     Dosage: 400 MILLIGRAM, QD
     Dates: start: 2006, end: 200609
  11. IMATINIB [Suspect]
     Active Substance: IMATINIB
     Dosage: 400 MILLIGRAM, QD
     Route: 065
     Dates: start: 2006, end: 200609
  12. IMATINIB [Suspect]
     Active Substance: IMATINIB
     Dosage: 400 MILLIGRAM, QD
     Route: 065
     Dates: start: 2006, end: 200609
  13. IMATINIB [Suspect]
     Active Substance: IMATINIB
     Dosage: 400 MILLIGRAM, QD
     Dates: start: 2006, end: 200704
  14. IMATINIB [Suspect]
     Active Substance: IMATINIB
     Dosage: 400 MILLIGRAM, QD
     Dates: start: 2006, end: 200704
  15. IMATINIB [Suspect]
     Active Substance: IMATINIB
     Dosage: 400 MILLIGRAM, QD
     Route: 065
     Dates: start: 2006, end: 200704
  16. IMATINIB [Suspect]
     Active Substance: IMATINIB
     Dosage: 400 MILLIGRAM, QD
     Route: 065
     Dates: start: 2006, end: 200704
  17. IMATINIB [Suspect]
     Active Substance: IMATINIB
     Dosage: 400 MILLIGRAM, QD
     Dates: start: 2007
  18. IMATINIB [Suspect]
     Active Substance: IMATINIB
     Dosage: 400 MILLIGRAM, QD
     Dates: start: 2007
  19. IMATINIB [Suspect]
     Active Substance: IMATINIB
     Dosage: 400 MILLIGRAM, QD
     Route: 065
     Dates: start: 2007
  20. IMATINIB [Suspect]
     Active Substance: IMATINIB
     Dosage: 400 MILLIGRAM, QD
     Route: 065
     Dates: start: 2007
  21. IMATINIB [Suspect]
     Active Substance: IMATINIB
     Dosage: 600 MILLIGRAM, QD
     Route: 065
     Dates: start: 201103
  22. IMATINIB [Suspect]
     Active Substance: IMATINIB
     Dosage: 600 MILLIGRAM, QD
     Dates: start: 201103
  23. IMATINIB [Suspect]
     Active Substance: IMATINIB
     Dosage: 600 MILLIGRAM, QD
     Dates: start: 201103
  24. IMATINIB [Suspect]
     Active Substance: IMATINIB
     Dosage: 600 MILLIGRAM, QD
     Route: 065
     Dates: start: 201103
  25. IMATINIB [Suspect]
     Active Substance: IMATINIB
     Dosage: UNK
     Route: 065
  26. IMATINIB [Suspect]
     Active Substance: IMATINIB
     Dosage: UNK
     Route: 065
  27. IMATINIB [Suspect]
     Active Substance: IMATINIB
     Dosage: UNK
     Route: 065
  28. IMATINIB [Suspect]
     Active Substance: IMATINIB
     Dosage: UNK
     Route: 065
  29. IMATINIB [Suspect]
     Active Substance: IMATINIB
     Dosage: 300 MG
  30. IMATINIB [Suspect]
     Active Substance: IMATINIB
     Dosage: 300 MG
  31. IMATINIB [Suspect]
     Active Substance: IMATINIB
     Dosage: 300 MG
     Route: 065
  32. IMATINIB [Suspect]
     Active Substance: IMATINIB
     Dosage: 300 MG
     Route: 065
  33. IMATINIB [Suspect]
     Active Substance: IMATINIB
     Dosage: UNK (INCREASED)
  34. IMATINIB [Suspect]
     Active Substance: IMATINIB
     Dosage: UNK (INCREASED)
     Route: 065
  35. IMATINIB [Suspect]
     Active Substance: IMATINIB
     Dosage: UNK (INCREASED)
  36. IMATINIB [Suspect]
     Active Substance: IMATINIB
     Dosage: UNK (INCREASED)
     Route: 065
  37. IMATINIB [Suspect]
     Active Substance: IMATINIB
     Dosage: 600 MILLIGRAM, QD
     Dates: end: 201007
  38. IMATINIB [Suspect]
     Active Substance: IMATINIB
     Dosage: 600 MILLIGRAM, QD
     Dates: end: 201007
  39. IMATINIB [Suspect]
     Active Substance: IMATINIB
     Dosage: 600 MILLIGRAM, QD
     Route: 065
     Dates: end: 201007
  40. IMATINIB [Suspect]
     Active Substance: IMATINIB
     Dosage: 600 MILLIGRAM, QD
     Route: 065
     Dates: end: 201007
  41. IMATINIB [Suspect]
     Active Substance: IMATINIB
     Dosage: 600 MG, QD
     Route: 065
     Dates: start: 201104
  42. IMATINIB [Suspect]
     Active Substance: IMATINIB
     Dosage: 600 MG, QD
     Dates: start: 201104
  43. IMATINIB [Suspect]
     Active Substance: IMATINIB
     Dosage: 600 MG, QD
     Dates: start: 201104
  44. IMATINIB [Suspect]
     Active Substance: IMATINIB
     Dosage: 600 MG, QD
     Route: 065
     Dates: start: 201104
  45. IMATINIB [Suspect]
     Active Substance: IMATINIB
     Dosage: UNK
     Route: 065
  46. IMATINIB [Suspect]
     Active Substance: IMATINIB
     Dosage: UNK
  47. IMATINIB [Suspect]
     Active Substance: IMATINIB
     Dosage: UNK
  48. IMATINIB [Suspect]
     Active Substance: IMATINIB
     Dosage: UNK
     Route: 065
  49. IMATINIB [Suspect]
     Active Substance: IMATINIB
     Dosage: UNK
  50. IMATINIB [Suspect]
     Active Substance: IMATINIB
     Dosage: UNK
  51. IMATINIB [Suspect]
     Active Substance: IMATINIB
     Dosage: UNK
     Route: 065
  52. IMATINIB [Suspect]
     Active Substance: IMATINIB
     Dosage: UNK
     Route: 065
  53. IMATINIB [Suspect]
     Active Substance: IMATINIB
     Dosage: UNK
  54. IMATINIB [Suspect]
     Active Substance: IMATINIB
     Dosage: UNK
  55. IMATINIB [Suspect]
     Active Substance: IMATINIB
     Dosage: UNK
     Route: 065
  56. IMATINIB [Suspect]
     Active Substance: IMATINIB
     Dosage: UNK
     Route: 065
  57. IMATINIB [Suspect]
     Active Substance: IMATINIB
     Dosage: UNK
  58. IMATINIB [Suspect]
     Active Substance: IMATINIB
     Dosage: UNK
  59. IMATINIB [Suspect]
     Active Substance: IMATINIB
     Dosage: UNK
     Route: 065
  60. IMATINIB [Suspect]
     Active Substance: IMATINIB
     Dosage: UNK
     Route: 065
  61. IMATINIB [Suspect]
     Active Substance: IMATINIB
     Dosage: 600 MG, QD
     Route: 065
     Dates: end: 201103
  62. IMATINIB [Suspect]
     Active Substance: IMATINIB
     Dosage: 600 MG, QD
     Dates: end: 201103
  63. IMATINIB [Suspect]
     Active Substance: IMATINIB
     Dosage: 600 MG, QD
     Dates: end: 201103
  64. IMATINIB [Suspect]
     Active Substance: IMATINIB
     Dosage: 600 MG, QD
     Route: 065
     Dates: end: 201103
  65. IMATINIB [Suspect]
     Active Substance: IMATINIB
     Dosage: UNK (INCREASED)
     Route: 065
  66. IMATINIB [Suspect]
     Active Substance: IMATINIB
     Dosage: UNK (INCREASED)
  67. IMATINIB [Suspect]
     Active Substance: IMATINIB
     Dosage: UNK (INCREASED)
  68. IMATINIB [Suspect]
     Active Substance: IMATINIB
     Dosage: UNK (INCREASED)
     Route: 065
  69. IMATINIB [Suspect]
     Active Substance: IMATINIB
     Dosage: 600 MG, QD
     Dates: end: 201007
  70. IMATINIB [Suspect]
     Active Substance: IMATINIB
     Dosage: 600 MG, QD
     Dates: end: 201007
  71. IMATINIB [Suspect]
     Active Substance: IMATINIB
     Dosage: 600 MG, QD
     Route: 065
     Dates: end: 201007
  72. IMATINIB [Suspect]
     Active Substance: IMATINIB
     Dosage: 600 MG, QD
     Route: 065
     Dates: end: 201007
  73. IMATINIB [Suspect]
     Active Substance: IMATINIB
     Dosage: UNK (DOSE CHANGED)
  74. IMATINIB [Suspect]
     Active Substance: IMATINIB
     Dosage: UNK (DOSE CHANGED)
     Route: 065
  75. IMATINIB [Suspect]
     Active Substance: IMATINIB
     Dosage: UNK (DOSE CHANGED)
  76. IMATINIB [Suspect]
     Active Substance: IMATINIB
     Dosage: UNK (DOSE CHANGED)
     Route: 065
  77. NILOTINIB [Suspect]
     Active Substance: NILOTINIB
     Indication: Chronic myeloid leukaemia
     Dosage: 600 MG, QD
     Route: 065
     Dates: start: 201104
  78. NILOTINIB [Suspect]
     Active Substance: NILOTINIB
     Dosage: 600 MG, QD
     Route: 065
     Dates: start: 201104
  79. NILOTINIB [Suspect]
     Active Substance: NILOTINIB
     Dosage: 600 MG, QD
     Route: 065
     Dates: start: 201104
  80. NILOTINIB [Suspect]
     Active Substance: NILOTINIB
     Dosage: 600 MG, QD
     Route: 065
     Dates: start: 201104
  81. NILOTINIB [Suspect]
     Active Substance: NILOTINIB
     Dosage: REDUCED
  82. NILOTINIB [Suspect]
     Active Substance: NILOTINIB
     Dosage: REDUCED
  83. NILOTINIB [Suspect]
     Active Substance: NILOTINIB
     Dosage: REDUCED
     Route: 065
  84. NILOTINIB [Suspect]
     Active Substance: NILOTINIB
     Dosage: REDUCED
     Route: 065
  85. NILOTINIB [Suspect]
     Active Substance: NILOTINIB
     Dosage: 400 MG, QD
     Dates: start: 202005
  86. NILOTINIB [Suspect]
     Active Substance: NILOTINIB
     Dosage: 400 MG, QD
     Dates: start: 202005
  87. NILOTINIB [Suspect]
     Active Substance: NILOTINIB
     Dosage: 400 MG, QD
     Route: 065
     Dates: start: 202005
  88. NILOTINIB [Suspect]
     Active Substance: NILOTINIB
     Dosage: 400 MG, QD
     Route: 065
     Dates: start: 202005
  89. NILOTINIB [Suspect]
     Active Substance: NILOTINIB
     Dosage: 800 MILLIGRAM, QD
     Route: 065
  90. NILOTINIB [Suspect]
     Active Substance: NILOTINIB
     Dosage: 800 MILLIGRAM, QD
  91. NILOTINIB [Suspect]
     Active Substance: NILOTINIB
     Dosage: 800 MILLIGRAM, QD
  92. NILOTINIB [Suspect]
     Active Substance: NILOTINIB
     Dosage: 800 MILLIGRAM, QD
     Route: 065
  93. NILOTINIB [Suspect]
     Active Substance: NILOTINIB
     Dosage: REDUCED
  94. NILOTINIB [Suspect]
     Active Substance: NILOTINIB
     Dosage: REDUCED
     Route: 065
  95. NILOTINIB [Suspect]
     Active Substance: NILOTINIB
     Dosage: REDUCED
  96. NILOTINIB [Suspect]
     Active Substance: NILOTINIB
     Dosage: REDUCED
     Route: 065
  97. NILOTINIB [Suspect]
     Active Substance: NILOTINIB
     Dosage: 400 MILLIGRAM, QD
     Route: 065
     Dates: end: 202401
  98. NILOTINIB [Suspect]
     Active Substance: NILOTINIB
     Dosage: 400 MILLIGRAM, QD
     Route: 065
     Dates: end: 202401
  99. NILOTINIB [Suspect]
     Active Substance: NILOTINIB
     Dosage: 400 MILLIGRAM, QD
     Dates: end: 202401
  100. NILOTINIB [Suspect]
     Active Substance: NILOTINIB
     Dosage: 400 MILLIGRAM, QD
     Dates: end: 202401
  101. NILOTINIB [Suspect]
     Active Substance: NILOTINIB
     Dosage: UNK (REDUCED)
  102. NILOTINIB [Suspect]
     Active Substance: NILOTINIB
     Dosage: UNK (REDUCED)
  103. NILOTINIB [Suspect]
     Active Substance: NILOTINIB
     Dosage: UNK (REDUCED)
     Route: 065
  104. NILOTINIB [Suspect]
     Active Substance: NILOTINIB
     Dosage: UNK (REDUCED)
     Route: 065
  105. NILOTINIB [Suspect]
     Active Substance: NILOTINIB
     Dosage: 800 MG, QD
     Route: 065
  106. NILOTINIB [Suspect]
     Active Substance: NILOTINIB
     Dosage: 800 MG, QD
  107. NILOTINIB [Suspect]
     Active Substance: NILOTINIB
     Dosage: 800 MG, QD
  108. NILOTINIB [Suspect]
     Active Substance: NILOTINIB
     Dosage: 800 MG, QD
     Route: 065
  109. NILOTINIB [Suspect]
     Active Substance: NILOTINIB
     Dosage: UNK (REDUCED)
     Route: 065
  110. NILOTINIB [Suspect]
     Active Substance: NILOTINIB
     Dosage: UNK (REDUCED)
  111. NILOTINIB [Suspect]
     Active Substance: NILOTINIB
     Dosage: UNK (REDUCED)
  112. NILOTINIB [Suspect]
     Active Substance: NILOTINIB
     Dosage: UNK (REDUCED)
     Route: 065
  113. NILOTINIB [Suspect]
     Active Substance: NILOTINIB
     Dosage: 400 MG, QD
     Dates: end: 202401
  114. NILOTINIB [Suspect]
     Active Substance: NILOTINIB
     Dosage: 400 MG, QD
     Dates: end: 202401
  115. NILOTINIB [Suspect]
     Active Substance: NILOTINIB
     Dosage: 400 MG, QD
     Route: 065
     Dates: end: 202401
  116. NILOTINIB [Suspect]
     Active Substance: NILOTINIB
     Dosage: 400 MG, QD
     Route: 065
     Dates: end: 202401
  117. DASATINIB [Suspect]
     Active Substance: DASATINIB
     Indication: Chronic myeloid leukaemia
     Dosage: 90 MG, QD
     Dates: start: 201306, end: 201602
  118. DASATINIB [Suspect]
     Active Substance: DASATINIB
     Dosage: 90 MG, QD
     Dates: start: 201306, end: 201602
  119. DASATINIB [Suspect]
     Active Substance: DASATINIB
     Dosage: 90 MG, QD
     Route: 065
     Dates: start: 201306, end: 201602
  120. DASATINIB [Suspect]
     Active Substance: DASATINIB
     Dosage: 90 MG, QD
     Route: 065
     Dates: start: 201306, end: 201602
  121. DASATINIB [Suspect]
     Active Substance: DASATINIB
     Dosage: 70 MG, QD
     Route: 065
     Dates: start: 201605, end: 201905
  122. DASATINIB [Suspect]
     Active Substance: DASATINIB
     Dosage: 70 MG, QD
     Route: 065
     Dates: start: 201605, end: 201905
  123. DASATINIB [Suspect]
     Active Substance: DASATINIB
     Dosage: 70 MG, QD
     Dates: start: 201605, end: 201905
  124. DASATINIB [Suspect]
     Active Substance: DASATINIB
     Dosage: 70 MG, QD
     Dates: start: 201605, end: 201905
  125. DASATINIB [Suspect]
     Active Substance: DASATINIB
     Dosage: UNK
     Route: 065
  126. DASATINIB [Suspect]
     Active Substance: DASATINIB
     Dosage: UNK
     Route: 065
  127. DASATINIB [Suspect]
     Active Substance: DASATINIB
     Dosage: UNK
  128. DASATINIB [Suspect]
     Active Substance: DASATINIB
     Dosage: UNK
  129. DASATINIB [Suspect]
     Active Substance: DASATINIB
     Dosage: UNK
  130. DASATINIB [Suspect]
     Active Substance: DASATINIB
     Dosage: UNK
  131. DASATINIB [Suspect]
     Active Substance: DASATINIB
     Dosage: UNK
     Route: 065
  132. DASATINIB [Suspect]
     Active Substance: DASATINIB
     Dosage: UNK
     Route: 065
  133. ASCIMINIB [Suspect]
     Active Substance: ASCIMINIB
     Indication: Chronic myeloid leukaemia
     Dosage: 160 MILLIGRAM, QD (80 MG, BID)
     Dates: start: 202404
  134. ASCIMINIB [Suspect]
     Active Substance: ASCIMINIB
     Dosage: 160 MILLIGRAM, QD (80 MG, BID)
     Route: 065
     Dates: start: 202404
  135. ASCIMINIB [Suspect]
     Active Substance: ASCIMINIB
     Dosage: 160 MILLIGRAM, QD (80 MG, BID)
     Route: 065
     Dates: start: 202404
  136. ASCIMINIB [Suspect]
     Active Substance: ASCIMINIB
     Dosage: 160 MILLIGRAM, QD (80 MG, BID)
     Dates: start: 202404
  137. PONATINIB [Suspect]
     Active Substance: PONATINIB
     Indication: Chronic myeloid leukaemia
     Dosage: 15 MG, QD
     Dates: start: 202401, end: 202402
  138. PONATINIB [Suspect]
     Active Substance: PONATINIB
     Dosage: 15 MG, QD
     Dates: start: 202401, end: 202402
  139. PONATINIB [Suspect]
     Active Substance: PONATINIB
     Dosage: 15 MG, QD
     Route: 065
     Dates: start: 202401, end: 202402
  140. PONATINIB [Suspect]
     Active Substance: PONATINIB
     Dosage: 15 MG, QD
     Route: 065
     Dates: start: 202401, end: 202402
  141. PONATINIB [Suspect]
     Active Substance: PONATINIB
     Dosage: 45 MG, QD
     Route: 065
     Dates: start: 202402, end: 2024
  142. PONATINIB [Suspect]
     Active Substance: PONATINIB
     Dosage: 45 MG, QD
     Route: 065
     Dates: start: 202402, end: 2024
  143. PONATINIB [Suspect]
     Active Substance: PONATINIB
     Dosage: 45 MG, QD
     Route: 065
     Dates: start: 202402, end: 2024
  144. PONATINIB [Suspect]
     Active Substance: PONATINIB
     Dosage: 45 MG, QD
     Route: 065
     Dates: start: 202402, end: 2024
  145. PONATINIB [Suspect]
     Active Substance: PONATINIB
     Dosage: UNK
     Route: 065
  146. PONATINIB [Suspect]
     Active Substance: PONATINIB
     Dosage: UNK
     Route: 065
  147. PONATINIB [Suspect]
     Active Substance: PONATINIB
     Dosage: UNK
  148. PONATINIB [Suspect]
     Active Substance: PONATINIB
     Dosage: UNK
  149. PONATINIB [Suspect]
     Active Substance: PONATINIB
     Dosage: UNK (REDUCED)
  150. PONATINIB [Suspect]
     Active Substance: PONATINIB
     Dosage: UNK (REDUCED)
  151. PONATINIB [Suspect]
     Active Substance: PONATINIB
     Dosage: UNK (REDUCED)
     Route: 065
  152. PONATINIB [Suspect]
     Active Substance: PONATINIB
     Dosage: UNK (REDUCED)
     Route: 065

REACTIONS (18)
  - Chronic myeloid leukaemia [Unknown]
  - Peritonitis [Unknown]
  - Haematotoxicity [Recovered/Resolved]
  - Thrombocytopenia [Recovered/Resolved]
  - Large intestine perforation [Recovered/Resolved]
  - Pleural effusion [Recovered/Resolved]
  - Ileus [Recovered/Resolved]
  - Neuropathy peripheral [Recovering/Resolving]
  - Malignant neoplasm progression [Unknown]
  - Condition aggravated [Unknown]
  - Vaginal haemorrhage [Recovered/Resolved]
  - Gastrointestinal tract irritation [Recovered/Resolved]
  - Nausea [Unknown]
  - Vomiting [Unknown]
  - Hypertension [Recovered/Resolved]
  - Dermatitis allergic [Unknown]
  - Treatment failure [Recovered/Resolved]
  - Therapeutic response shortened [Unknown]

NARRATIVE: CASE EVENT DATE: 20060501
